FAERS Safety Report 20240300 (Version 1)
Quarter: 2021Q4

REPORT INFORMATION
  Report Type: Report from Study
  Country: DE (occurrence: DE)
  Receive Date: 20211228
  Receipt Date: 20211228
  Transmission Date: 20220303
  Serious: Yes (Other)
  Sender: FDA-Public Use
  Company Number: DE-JNJFOC-20211140505

PATIENT
  Age: 73 Year
  Sex: Male

DRUGS (1)
  1. ABIRATERONE [Suspect]
     Active Substance: ABIRATERONE
     Indication: Prostate cancer metastatic
     Dosage: 1000 MILLIGRAM
     Route: 048

REACTIONS (6)
  - Dementia [Unknown]
  - Incontinence [Unknown]
  - Blood pressure fluctuation [Unknown]
  - Vertigo [Unknown]
  - Polyneuropathy [Recovering/Resolving]
  - Nausea [Unknown]
